FAERS Safety Report 20826140 (Version 1)
Quarter: 2022Q2

REPORT INFORMATION
  Report Type: Spontaneous
  Country: DE (occurrence: DE)
  Receive Date: 20220513
  Receipt Date: 20220513
  Transmission Date: 20220721
  Serious: Yes (Life-Threatening, Hospitalization, Other)
  Sender: FDA-Public Use
  Company Number: DE-002147023-NVSC2020DE297876

PATIENT
  Age: 41 Year
  Sex: Female
  Weight: 100 kg

DRUGS (86)
  1. DIAZEPAM [Suspect]
     Active Substance: DIAZEPAM
     Indication: Pain in extremity
     Dosage: 10 MG
     Route: 065
     Dates: start: 20150608
  2. DIAZEPAM [Suspect]
     Active Substance: DIAZEPAM
     Indication: Back pain
     Dosage: 1X 2.5, QD, 1X DAILY (MORNING)
     Route: 065
  3. DIAZEPAM [Suspect]
     Active Substance: DIAZEPAM
     Indication: Product used for unknown indication
     Dosage: 1X 2.5, QD, 1X DAILY (EVENING)
     Route: 065
  4. DIAZEPAM [Suspect]
     Active Substance: DIAZEPAM
     Indication: Product used for unknown indication
     Dosage: 1X 2.5, QD, 1X DAILY (MORNING)
     Route: 065
  5. DIAZEPAM [Suspect]
     Active Substance: DIAZEPAM
     Indication: Pain in extremity
     Dosage: 1X 2.5, QD, 1X DAILY (EVENING)
     Route: 065
  6. DIAZEPAM [Suspect]
     Active Substance: DIAZEPAM
     Indication: Back pain
     Dosage: 1X 2.5, QD, 1X DAILY (MORNING)
     Route: 065
  7. DIAZEPAM [Suspect]
     Active Substance: DIAZEPAM
     Dosage: 1X 2.5, QD, 1X DAILY (EVENING)
     Route: 065
  8. DIAZEPAM [Suspect]
     Active Substance: DIAZEPAM
     Route: 065
     Dates: start: 20150608
  9. PREDNISOLONE [Suspect]
     Active Substance: PREDNISOLONE
     Indication: Hodgkin^s disease
     Dosage: (80 MG), DAY 1 - 14, DAILY
     Route: 065
     Dates: start: 20160113, end: 20160126
  10. DICLOFENAC [Suspect]
     Active Substance: DICLOFENAC
     Indication: Product used for unknown indication
     Route: 065
  11. PROCARBAZINE [Suspect]
     Active Substance: PROCARBAZINE
     Indication: Hodgkin^s disease
     Dosage: 100 MG/M2 (200 MG), DAY 1-7
     Route: 065
     Dates: start: 20190113, end: 20190119
  12. PIRITRAMIDE [Suspect]
     Active Substance: PIRITRAMIDE
     Indication: Back pain
     Route: 065
     Dates: start: 20150608
  13. PIRITRAMIDE [Suspect]
     Active Substance: PIRITRAMIDE
     Indication: Pain in extremity
  14. VINBLASTINE [Suspect]
     Active Substance: VINBLASTINE
     Indication: Hodgkin^s disease
     Dosage: (DAY 1 AND DAY 15)
     Route: 065
     Dates: start: 20151027, end: 201512
  15. VALSARTAN [Suspect]
     Active Substance: VALSARTAN
     Indication: Hypertension
     Route: 065
     Dates: start: 20140707
  16. VALSARTAN [Suspect]
     Active Substance: VALSARTAN
     Indication: Hypertension
     Dosage: 160/ 12.5 MG
     Route: 065
     Dates: end: 201410
  17. VALSARTAN [Suspect]
     Active Substance: VALSARTAN
     Dosage: 160/ 12.5 MG
     Route: 065
     Dates: start: 201410, end: 201704
  18. VALSARTAN [Suspect]
     Active Substance: VALSARTAN
     Route: 065
     Dates: start: 20141014
  19. VALSARTAN [Suspect]
     Active Substance: VALSARTAN
     Route: 065
     Dates: start: 20160427
  20. VALSARTAN [Suspect]
     Active Substance: VALSARTAN
     Route: 065
     Dates: start: 20150415
  21. VALSARTAN [Suspect]
     Active Substance: VALSARTAN
     Route: 065
     Dates: start: 20160804
  22. VALSARTAN [Suspect]
     Active Substance: VALSARTAN
     Route: 065
     Dates: start: 20150611
  23. VALSARTAN [Suspect]
     Active Substance: VALSARTAN
     Route: 065
     Dates: start: 20150102
  24. VALSARTAN [Suspect]
     Active Substance: VALSARTAN
     Dosage: 160 MG / 12.5 MG
     Route: 065
     Dates: start: 201301
  25. VALSARTAN [Suspect]
     Active Substance: VALSARTAN
     Dosage: UNK
     Route: 065
     Dates: start: 20130124
  26. IBUPROFEN [Suspect]
     Active Substance: IBUPROFEN
     Indication: Product used for unknown indication
     Route: 065
  27. LENOGRASTIM [Suspect]
     Active Substance: LENOGRASTIM
     Indication: Neutropenia
     Dosage: 1X 34
     Route: 065
     Dates: start: 20160203, end: 20160205
  28. LENOGRASTIM [Suspect]
     Active Substance: LENOGRASTIM
     Dosage: 1X 34
     Route: 065
     Dates: start: 20160120, end: 201601
  29. LENOGRASTIM [Suspect]
     Active Substance: LENOGRASTIM
     Route: 065
     Dates: start: 201511, end: 201511
  30. LENOGRASTIM [Suspect]
     Active Substance: LENOGRASTIM
     Route: 065
     Dates: start: 201511
  31. DACARBAZINE [Suspect]
     Active Substance: DACARBAZINE
     Indication: Hodgkin^s disease
     Dosage: DAY 1 AND DAY 15
     Route: 065
     Dates: start: 20151027, end: 201512
  32. BACLOFEN [Suspect]
     Active Substance: BACLOFEN
     Indication: Product used for unknown indication
     Dosage: 200 MCG/20 MG VIA PUMP (1-1-1)
     Route: 058
  33. BACLOFEN [Suspect]
     Active Substance: BACLOFEN
     Indication: Product used for unknown indication
     Dosage: VIA PUMP
     Route: 058
  34. BACLOFEN [Suspect]
     Active Substance: BACLOFEN
     Dosage: VIA PUMP
     Route: 058
  35. BACLOFEN [Suspect]
     Active Substance: BACLOFEN
     Dosage: (25/20 MG IN MORNING, 20 MG IN NOON, 20 MG IN THE EVENING
     Route: 065
  36. BACLOFEN [Suspect]
     Active Substance: BACLOFEN
     Dosage: (1-1-1-1 ONCE IN MORNING, NOON, AFTERNOON, EVENING)
     Route: 048
     Dates: start: 20180102
  37. BACLOFEN [Suspect]
     Active Substance: BACLOFEN
     Route: 048
     Dates: start: 20170704, end: 20170712
  38. BACLOFEN [Suspect]
     Active Substance: BACLOFEN
     Dosage: (125 UG/24 HOURS 2000 UG/ML VIA PUMP)
     Route: 065
     Dates: start: 20180228
  39. VINCRISTINE [Suspect]
     Active Substance: VINCRISTINE
     Indication: Hodgkin^s disease
     Dosage: ABSOLUTE, DAY 8
     Route: 065
     Dates: start: 20160120
  40. ETOPOSIDE [Suspect]
     Active Substance: ETOPOSIDE
     Indication: Hodgkin^s disease
     Dosage: DAY 1-3
     Route: 065
     Dates: start: 20160113
  41. ASPIRIN [Suspect]
     Active Substance: ASPIRIN
     Indication: Product used for unknown indication
     Route: 065
  42. HYDROCHLOROTHIAZIDE\VALSARTAN [Suspect]
     Active Substance: HYDROCHLOROTHIAZIDE\VALSARTAN
     Indication: Hypertension
     Dosage: 160 MG/12.5 MG
     Route: 065
     Dates: start: 20150611
  43. HYDROCHLOROTHIAZIDE\VALSARTAN [Suspect]
     Active Substance: HYDROCHLOROTHIAZIDE\VALSARTAN
     Route: 065
     Dates: start: 20141014
  44. HYDROCHLOROTHIAZIDE\VALSARTAN [Suspect]
     Active Substance: HYDROCHLOROTHIAZIDE\VALSARTAN
     Route: 065
     Dates: start: 20140707
  45. HYDROCHLOROTHIAZIDE\VALSARTAN [Suspect]
     Active Substance: HYDROCHLOROTHIAZIDE\VALSARTAN
     Route: 065
     Dates: start: 20170112
  46. HYDROCHLOROTHIAZIDE\VALSARTAN [Suspect]
     Active Substance: HYDROCHLOROTHIAZIDE\VALSARTAN
     Route: 065
     Dates: start: 20150102
  47. HYDROCHLOROTHIAZIDE\VALSARTAN [Suspect]
     Active Substance: HYDROCHLOROTHIAZIDE\VALSARTAN
     Dosage: (IN MORNING, 1-0-0)
     Route: 065
     Dates: start: 201410, end: 201704
  48. HYDROCHLOROTHIAZIDE\VALSARTAN [Suspect]
     Active Substance: HYDROCHLOROTHIAZIDE\VALSARTAN
     Route: 065
     Dates: start: 20160427
  49. HYDROCHLOROTHIAZIDE\VALSARTAN [Suspect]
     Active Substance: HYDROCHLOROTHIAZIDE\VALSARTAN
     Route: 065
     Dates: start: 20150415
  50. HYDROCHLOROTHIAZIDE\VALSARTAN [Suspect]
     Active Substance: HYDROCHLOROTHIAZIDE\VALSARTAN
     Dosage: (IN MORNING 1-0-0)
     Route: 065
  51. HYDROCHLOROTHIAZIDE\VALSARTAN [Suspect]
     Active Substance: HYDROCHLOROTHIAZIDE\VALSARTAN
     Route: 065
     Dates: start: 20160804
  52. CYCLOPHOSPHAMIDE [Suspect]
     Active Substance: CYCLOPHOSPHAMIDE
     Indication: Hodgkin^s disease
     Route: 065
     Dates: start: 20160113
  53. NEULASTA [Suspect]
     Active Substance: PEGFILGRASTIM
     Indication: Neutropenia
     Route: 058
     Dates: start: 20151212, end: 20151212
  54. BLEOMYCIN [Suspect]
     Active Substance: BLEOMYCIN SULFATE
     Indication: Hodgkin^s disease
     Dosage: DAY 8
     Route: 065
     Dates: start: 20160120
  55. BLEOMYCIN [Suspect]
     Active Substance: BLEOMYCIN SULFATE
     Dosage: (DAY 1 AND DAY 15)
     Route: 065
     Dates: start: 20151027, end: 201512
  56. DOXORUBICIN [Suspect]
     Active Substance: DOXORUBICIN
     Indication: Hodgkin^s disease
     Dosage: (DAY 1 AND DAY 15)
     Route: 065
     Dates: start: 20151027, end: 201512
  57. DOXORUBICIN [Suspect]
     Active Substance: DOXORUBICIN
     Dosage: (DAY 1)
     Route: 065
     Dates: start: 20160113
  58. ACETAMINOPHEN [Suspect]
     Active Substance: ACETAMINOPHEN
     Indication: Product used for unknown indication
     Route: 065
  59. MORPHINE [Concomitant]
     Active Substance: MORPHINE
     Indication: Pain
     Dosage: VIA PUMP
     Route: 065
  60. MOTILIUM [Concomitant]
     Active Substance: DOMPERIDONE
     Indication: Product used for unknown indication
     Dosage: ONCE IN THE MORNING, NOON AND EVENING)
     Route: 048
  61. MOTILIUM [Concomitant]
     Active Substance: DOMPERIDONE
     Dosage: SACHET, 4X DAILY
     Route: 065
  62. HYDROCHLOROTHIAZIDE\VALSARTAN [Concomitant]
     Active Substance: HYDROCHLOROTHIAZIDE\VALSARTAN
     Indication: Hypertension
     Route: 065
     Dates: start: 20170411
  63. HYDROCHLOROTHIAZIDE\VALSARTAN [Concomitant]
     Active Substance: HYDROCHLOROTHIAZIDE\VALSARTAN
     Dosage: 160 MG / 12.5 MG
     Route: 065
     Dates: start: 201704, end: 2017
  64. HYDROCHLOROTHIAZIDE\VALSARTAN [Concomitant]
     Active Substance: HYDROCHLOROTHIAZIDE\VALSARTAN
     Route: 065
     Dates: start: 20170725
  65. LYRICA [Concomitant]
     Active Substance: PREGABALIN
     Indication: Product used for unknown indication
     Dosage: 1X 150, 2X DAILY (MORNING AND EVENING)
     Route: 065
  66. LYRICA [Concomitant]
     Active Substance: PREGABALIN
     Dosage: 1X 150, 1X, STOP DATE: FEB/MAR 2016
     Route: 065
     Dates: end: 2016
  67. LYRICA [Concomitant]
     Active Substance: PREGABALIN
     Dosage: 2X 75, 1X DAILY (MORNING), START DATE: FEB/MAR 2016
     Route: 065
     Dates: start: 2016
  68. LYRICA [Concomitant]
     Active Substance: PREGABALIN
     Dosage: 1X 150, 2X DAILY (MORNING AND EVENING)
     Route: 065
  69. LYRICA [Concomitant]
     Active Substance: PREGABALIN
     Dosage: 1X 150, 1X, STOP DATE: FEB/MAR 2016
     Route: 065
     Dates: end: 2016
  70. LYRICA [Concomitant]
     Active Substance: PREGABALIN
     Dosage: 1X 75, 1X DAILY (EVENING), START DATE: FEB/MAR 2016
     Route: 065
     Dates: start: 2016
  71. CLORAZEPATE DIPOTASSIUM [Concomitant]
     Active Substance: CLORAZEPATE DIPOTASSIUM
     Indication: Product used for unknown indication
     Dosage: (1X 15 MG, QD, 1X DAILY (EVENING OR NIGHT))
     Route: 065
  72. CLORAZEPATE DIPOTASSIUM [Concomitant]
     Active Substance: CLORAZEPATE DIPOTASSIUM
     Dosage: (1X 10 MG, BID, 2X DAILY (MORNING AND EVENING))
     Route: 065
  73. CLORAZEPATE DIPOTASSIUM [Concomitant]
     Active Substance: CLORAZEPATE DIPOTASSIUM
     Dosage: (1X 10 MG, QD, 1X DAILY (MORNING))
     Route: 065
  74. CHOLECALCIFEROL [Concomitant]
     Active Substance: CHOLECALCIFEROL
     Indication: Product used for unknown indication
     Dosage: (IN THE MORNING)
     Route: 048
  75. MOVICOL [MACROGOL 3350;POTASSIUM CHLORIDE;SODIUM BICARBONATE;SODIUM... [Concomitant]
     Indication: Product used for unknown indication
     Dosage: SACHET, 1X IF NEEDED
     Route: 065
  76. ENOXAPARIN SODIUM [Concomitant]
     Active Substance: ENOXAPARIN SODIUM
     Indication: Thrombosis prophylaxis
     Route: 058
  77. CLONIDINE [Concomitant]
     Active Substance: CLONIDINE
     Indication: Product used for unknown indication
     Dosage: 0.15 UG, BID (1-0-1 IN MORNINGA AND EVENING)
     Route: 065
  78. CLONIDINE [Concomitant]
     Active Substance: CLONIDINE
     Dosage: BID (1X0.5 MG)
     Route: 065
  79. LEVOTHYROXINE [Concomitant]
     Active Substance: LEVOTHYROXINE
     Indication: Product used for unknown indication
     Route: 065
  80. HYDROMORPHONE [Concomitant]
     Active Substance: HYDROMORPHONE
     Indication: Product used for unknown indication
     Route: 065
     Dates: end: 201511
  81. COTRIMOXAZOLE [Concomitant]
     Active Substance: SULFAMETHOXAZOLE\TRIMETHOPRIM
     Indication: Pneumonia
     Dosage: 1 DF, BID, DF (ON (SATURDAY AND SUNDAY)
     Route: 065
  82. PANTOZOL [Concomitant]
     Active Substance: PANTOPRAZOLE SODIUM
     Indication: Product used for unknown indication
     Dosage: 1X 40, 1X DAILY (MORNING)
     Route: 065
  83. PANTOZOL [Concomitant]
     Active Substance: PANTOPRAZOLE SODIUM
     Route: 065
  84. PANTOZOL [Concomitant]
     Active Substance: PANTOPRAZOLE SODIUM
     Dosage: 1X 40, 1X DAILY (EVENING)
     Route: 065
  85. CITALOPRAM [Concomitant]
     Active Substance: CITALOPRAM HYDROBROMIDE
     Indication: Product used for unknown indication
     Dosage: 1X 20, 1X DAILY (MORNING)
     Route: 065
  86. SULFAMETHOXAZOLE\TRIMETHOPRIM [Concomitant]
     Active Substance: SULFAMETHOXAZOLE\TRIMETHOPRIM
     Indication: Pneumonia
     Route: 065

REACTIONS (69)
  - General physical health deterioration [Unknown]
  - Loss of consciousness [Unknown]
  - Anaphylactic reaction [Unknown]
  - Sepsis [Unknown]
  - Fall [Unknown]
  - Pyrexia [Recovered/Resolved]
  - Dysphagia [Unknown]
  - Lymphadenopathy [Recovering/Resolving]
  - Klebsiella infection [Unknown]
  - Arthralgia [Unknown]
  - Pain in extremity [Recovering/Resolving]
  - Dizziness [Unknown]
  - Headache [Unknown]
  - Drug abuse [Unknown]
  - Hypoaesthesia [Recovering/Resolving]
  - Hepatic steatosis [Unknown]
  - Neurological decompensation [Recovering/Resolving]
  - Sleep apnoea syndrome [Unknown]
  - Respiratory failure [Unknown]
  - Hypochromic anaemia [Unknown]
  - Haematoma [Unknown]
  - Pain [Unknown]
  - Pneumonia [Unknown]
  - Urinary tract infection [Unknown]
  - Abdominal tenderness [Unknown]
  - Basal ganglion degeneration [Unknown]
  - Vomiting [Recovering/Resolving]
  - Spinal pain [Unknown]
  - Uterine enlargement [Unknown]
  - Hypokinesia [Not Recovered/Not Resolved]
  - Device malfunction [Unknown]
  - Back pain [Recovering/Resolving]
  - Hyperhidrosis [Unknown]
  - Cough [Unknown]
  - Speech disorder [Recovering/Resolving]
  - Viral infection [Unknown]
  - Anaesthesia [Recovering/Resolving]
  - Tachycardia [Unknown]
  - Tissue infiltration [Unknown]
  - Candida infection [Unknown]
  - Intervertebral disc disorder [Unknown]
  - Hodgkin^s disease [Unknown]
  - Dyspnoea [Recovering/Resolving]
  - Hyperventilation [Unknown]
  - Tremor [Unknown]
  - Muscle spasticity [Unknown]
  - Renal cyst [Unknown]
  - Drug hypersensitivity [Unknown]
  - Drug intolerance [Unknown]
  - Neutropenia [Recovering/Resolving]
  - Psychogenic seizure [Unknown]
  - Bone pain [Unknown]
  - Somnolence [Recovering/Resolving]
  - Nausea [Recovering/Resolving]
  - Obesity [Unknown]
  - Splenomegaly [Unknown]
  - Fatigue [Unknown]
  - Pulmonary congestion [Unknown]
  - Sleep disorder [Unknown]
  - Dysaesthesia [Recovering/Resolving]
  - Inguinal hernia [Unknown]
  - Myalgia [Unknown]
  - Lung disorder [Unknown]
  - Tenderness [Unknown]
  - Hypothyroidism [Unknown]
  - Hyperpyrexia [Unknown]
  - Inflammation [Recovering/Resolving]
  - Monoplegia [Unknown]
  - Red blood cell sedimentation rate increased [Unknown]

NARRATIVE: CASE EVENT DATE: 20150608
